FAERS Safety Report 5656954-9 (Version None)
Quarter: 2008Q1

REPORT INFORMATION
  Report Type: 
  Country: None (occurrence: None)
  Receive Date: 20080310
  Receipt Date: 20080228
  Transmission Date: 20080703
  Serious: Yes (Disabling)
  Sender: FDA-Public Use
  Company Number: A0700014A

PATIENT
  Age: 76 Year
  Sex: Male
  Weight: 68.2 kg

DRUGS (4)
  1. REQUIP [Suspect]
     Indication: PARKINSON'S DISEASE
     Dosage: 4.75MG PER DAY
     Route: 048
     Dates: start: 20020101
  2. SINEMET [Concomitant]
  3. PROSCAR [Concomitant]
  4. PRILOSEC [Concomitant]

REACTIONS (1)
  - MUSCLE RIGIDITY [None]
